FAERS Safety Report 6522537-1 (Version None)
Quarter: 2009Q4

REPORT INFORMATION
  Report Type: 
  Country: None (occurrence: None)
  Receive Date: 20091224
  Receipt Date: 20091216
  Transmission Date: 20100525
  Serious: Yes (Other)
  Sender: FDA-Public Use
  Company Number: TRP_06533_2009

PATIENT
  Sex: Male

DRUGS (2)
  1. RIBAVARIN [Suspect]
     Indication: DRUG USE FOR UNKNOWN INDICATION
     Dosage: (DF)
  2. PEGASYS [Suspect]
     Indication: DRUG USE FOR UNKNOWN INDICATION
     Dosage: (DF)

REACTIONS (7)
  - ANAEMIA [None]
  - BLOOD PRESSURE DECREASED [None]
  - DEPRESSED MOOD [None]
  - INFLUENZA LIKE ILLNESS [None]
  - INJECTION SITE ERYTHEMA [None]
  - INSOMNIA [None]
  - WEIGHT DECREASED [None]
